FAERS Safety Report 8543441-3 (Version None)
Quarter: 2012Q3

REPORT INFORMATION
  Report Type: 
  Country: None (occurrence: None)
  Receive Date: 20120727
  Receipt Date: 20120723
  Transmission Date: 20120928
  Serious: Yes (Other)
  Sender: FDA-Public Use
  Company Number: PHHY2012FR043543

PATIENT
  Age: 82 Year
  Sex: Male
  Weight: 99 kg

DRUGS (4)
  1. CLOPIXOL [Suspect]
     Indication: AGITATION
     Dosage: 10 MG DAILY
     Route: 048
     Dates: start: 20081110, end: 20081219
  2. PLAVIX [Concomitant]
     Indication: CAROTID ARTERY STENOSIS
     Route: 048
  3. FUROSEMIDE [Concomitant]
     Indication: CARDIAC DISORDER
     Dosage: 40 MG DAILY
     Route: 048
  4. EXELON [Suspect]
     Indication: DEMENTIA WITH LEWY BODIES
     Dosage: 4.6 MG/24 HOURS
     Route: 062
     Dates: start: 20081001, end: 20111115

REACTIONS (6)
  - BUNDLE BRANCH BLOCK [None]
  - HALLUCINATION [None]
  - AGITATION [None]
  - BRADYARRHYTHMIA [None]
  - VENTRICULAR EXTRASYSTOLES [None]
  - SINOATRIAL BLOCK [None]
